FAERS Safety Report 6330573-3 (Version None)
Quarter: 2009Q3

REPORT INFORMATION
  Report Type: 
  Country: None (occurrence: None)
  Receive Date: 20090827
  Receipt Date: 20090819
  Transmission Date: 20100115
  Serious: Yes (Other)
  Sender: FDA-Public Use
  Company Number: JP-NOVOPROD-290287

PATIENT
  Age: 78 Year
  Sex: Male

DRUGS (2)
  1. LEVEMIR [Suspect]
     Indication: TYPE 2 DIABETES MELLITUS
     Dosage: 8 IU, QD
     Route: 058
     Dates: start: 20090501, end: 20090701
  2. LEVEMIR [Suspect]
     Dosage: 3 U, UNK
     Dates: start: 20090730

REACTIONS (2)
  - ANTI-INSULIN ANTIBODY INCREASED [None]
  - HYPOGLYCAEMIA [None]
